FAERS Safety Report 20659296 (Version 1)
Quarter: 2022Q1

REPORT INFORMATION
  Report Type: Spontaneous
  Country: BE (occurrence: BE)
  Receive Date: 20220331
  Receipt Date: 20220331
  Transmission Date: 20220423
  Serious: Yes (Other)
  Sender: FDA-Public Use
  Company Number: BE-ORGANON-O2203BEL002758

PATIENT
  Age: 6 Year
  Sex: Male

DRUGS (1)
  1. MOMETASONE FUROATE [Suspect]
     Active Substance: MOMETASONE FUROATE
     Dosage: UNK
     Route: 048

REACTIONS (2)
  - Epilepsy [Unknown]
  - Product use issue [Unknown]
